FAERS Safety Report 9007858 (Version 2)
Quarter: 2013Q1

REPORT INFORMATION
  Report Type: Spontaneous
  Country: BR (occurrence: BR)
  Receive Date: 20130110
  Receipt Date: 20130215
  Transmission Date: 20140127
  Serious: Yes (Hospitalization, Other)
  Sender: FDA-Public Use
  Company Number: BR-009507513-1211BRA002988

PATIENT
  Age: 53 None
  Sex: Male
  Weight: 77 kg

DRUGS (6)
  1. VICTRELIS [Suspect]
     Indication: HEPATITIS C
     Dosage: 800 MG, TID
     Route: 048
     Dates: start: 20121015, end: 20121213
  2. PEGASYS [Concomitant]
     Indication: HEPATITIS C
     Dosage: UNK, QW
     Dates: start: 20120920, end: 20121213
  3. RIBAVIRIN [Concomitant]
     Indication: HEPATITIS C
     Dosage: 750 MG, QAM
     Dates: start: 20120920, end: 20121213
  4. RIBAVIRIN [Concomitant]
     Dosage: 500 MG, QPM
     Dates: start: 20120920
  5. PROPRANOLOL HYDROCHLORIDE [Concomitant]
     Indication: VARICES OESOPHAGEAL
     Dosage: 1/2 TABLET, QD
     Dates: start: 201105
  6. OMEPRAZOLE [Concomitant]
     Indication: GASTRIC DISORDER
     Dosage: 20 MG, QD
     Dates: start: 201105

REACTIONS (7)
  - White blood cell count decreased [Recovering/Resolving]
  - Necrotising fasciitis [Recovering/Resolving]
  - Pyrexia [Not Recovered/Not Resolved]
  - Fatigue [Recovered/Resolved]
  - Somnolence [Recovered/Resolved]
  - White blood cell count decreased [Recovered/Resolved]
  - Weight decreased [Not Recovered/Not Resolved]
